FAERS Safety Report 20539203 (Version 1)
Quarter: 2022Q1

REPORT INFORMATION
  Report Type: Report from Study
  Country: IN (occurrence: IN)
  Receive Date: 20220302
  Receipt Date: 20220302
  Transmission Date: 20220423
  Serious: Yes (Death, Life-Threatening, Hospitalization)
  Sender: FDA-Public Use
  Company Number: IN-JNJFOC-20200424148

PATIENT
  Age: 69 Year
  Sex: Male
  Weight: 68.6 kg

DRUGS (14)
  1. DARATUMUMAB [Suspect]
     Active Substance: DARATUMUMAB
     Indication: Plasma cell myeloma
     Dosage: WEEKLY FOR 8 WEEKS, THEN EVERY 2 WK FOR 16 WK (6 CYCLE OF 28 DAYS EACH, MOST RECENT DOSE 17-APR-2020
     Route: 042
     Dates: start: 20200316, end: 20200417
  2. MULTIVITAMIN                       /00097801/ [Concomitant]
     Indication: Supportive care
     Dosage: DOSE = 1
     Route: 048
     Dates: start: 20200326
  3. PANTOPRAZOLE [Concomitant]
     Active Substance: PANTOPRAZOLE
     Indication: Antacid therapy
     Route: 048
     Dates: start: 20200326
  4. AMLODIPINE [Concomitant]
     Active Substance: AMLODIPINE BESYLATE
     Indication: Hypertension
     Route: 048
     Dates: start: 20200328
  5. ULTRACET [Concomitant]
     Active Substance: ACETAMINOPHEN\TRAMADOL HYDROCHLORIDE
     Indication: Analgesic therapy
     Dosage: DOSE= 1 TAB
     Route: 048
     Dates: start: 20200330
  6. ACETAMINOPHEN [Concomitant]
     Active Substance: ACETAMINOPHEN
     Indication: Analgesic therapy
     Route: 048
     Dates: start: 20200330
  7. FENTANYL [Concomitant]
     Active Substance: FENTANYL
     Indication: Pain
     Route: 062
     Dates: start: 20200402
  8. GRANULOCYTE COLONY-STIMULATING FACTOR NOS [Concomitant]
     Active Substance: GRANULOCYTE COLONY-STIMULATING FACTOR NOS
     Indication: Colony stimulating factor therapy
     Route: 058
     Dates: start: 20200403
  9. BACTRIM DS [Concomitant]
     Active Substance: SULFAMETHOXAZOLE\TRIMETHOPRIM
     Indication: Antibiotic therapy
     Dosage: DOSE = 1 TAB
     Route: 048
     Dates: start: 20200326
  10. CALCIUM CARBONATE\CHOLECALCIFEROL [Concomitant]
     Active Substance: CALCIUM CARBONATE\CHOLECALCIFEROL
     Indication: Mineral supplementation
     Route: 048
     Dates: start: 20200326
  11. CEFIXIME [Concomitant]
     Active Substance: CEFIXIME
     Indication: Pyrexia
     Route: 048
     Dates: start: 20200406, end: 20200410
  12. AZITHROMYCIN [Concomitant]
     Active Substance: AZITHROMYCIN
     Indication: Pyrexia
     Route: 048
     Dates: start: 20200406, end: 20200410
  13. FLUCONAZOLE [Concomitant]
     Active Substance: FLUCONAZOLE
     Indication: Pyrexia
     Route: 048
     Dates: start: 20200406
  14. ROMIPLOSTIM [Concomitant]
     Active Substance: ROMIPLOSTIM
     Indication: Thrombocytopenia
     Route: 058
     Dates: start: 20200330, end: 20200410

REACTIONS (2)
  - Acute kidney injury [Fatal]
  - Septic shock [Fatal]

NARRATIVE: CASE EVENT DATE: 20200418
